FAERS Safety Report 8483351-3 (Version None)
Quarter: 2012Q3

REPORT INFORMATION
  Report Type: 
  Country: None (occurrence: None)
  Receive Date: 20120702
  Receipt Date: 20120622
  Transmission Date: 20120928
  Serious: Yes (Hospitalization, Other)
  Sender: FDA-Public Use
  Company Number: FR-BAXTER-2012BAX009382

PATIENT
  Sex: Female

DRUGS (13)
  1. FEMARA [Suspect]
     Route: 048
     Dates: start: 20050401, end: 20061101
  2. FLUOROURACIL [Suspect]
     Route: 042
     Dates: start: 20041203, end: 20050202
  3. EPIRUBICIN HYDROCHLORIDE [Suspect]
     Route: 042
     Dates: start: 20041203, end: 20050502
  4. TAXOTERE [Suspect]
     Route: 042
     Dates: start: 20050308, end: 20050419
  5. ARIMIDEX [Suspect]
     Route: 048
     Dates: start: 20080101, end: 20090201
  6. NAVOBAN [Suspect]
     Route: 048
     Dates: start: 20070701, end: 20071101
  7. CYCLOPHOSPHAMIDE [Suspect]
     Route: 042
     Dates: start: 20041203, end: 20050202
  8. XELODA [Suspect]
     Route: 048
     Dates: start: 20070801, end: 20071101
  9. NAVELBINE [Suspect]
     Route: 042
     Dates: start: 20070701, end: 20071101
  10. DOXORUBICIN HCL [Suspect]
     Route: 042
     Dates: start: 20071127, end: 20091105
  11. ESTRACYT                           /00327002/ [Suspect]
     Route: 042
     Dates: start: 20091203, end: 20110101
  12. AROMASIN [Suspect]
     Route: 048
     Dates: start: 20061101, end: 20070201
  13. FULVESTRANT [Suspect]
     Route: 048
     Dates: start: 20070201, end: 20070501

REACTIONS (1)
  - TONGUE NEOPLASM MALIGNANT STAGE UNSPECIFIED [None]
